FAERS Safety Report 6537329-7 (Version None)
Quarter: 2010Q1

REPORT INFORMATION
  Report Type: 
  Country: None (occurrence: None)
  Receive Date: 20100110
  Receipt Date: 20091230
  Transmission Date: 20100710
  Serious: Yes (Other)
  Sender: FDA-Public Use
  Company Number: 2009US003969

PATIENT
  Sex: Female

DRUGS (6)
  1. VESICARE [Suspect]
     Indication: MICTURITION URGENCY
     Dosage: ORAL
     Route: 048
  2. VESICARE [Suspect]
     Indication: POLLAKIURIA
     Dosage: ORAL
     Route: 048
  3. DETROL [Suspect]
     Indication: MICTURITION URGENCY
  4. DETROL [Suspect]
     Indication: POLLAKIURIA
  5. ESTRING [Suspect]
     Indication: MICTURITION URGENCY
  6. ESTRING [Suspect]
     Indication: POLLAKIURIA

REACTIONS (3)
  - INAPPROPRIATE SCHEDULE OF DRUG ADMINISTRATION [None]
  - MEMORY IMPAIRMENT [None]
  - MENORRHAGIA [None]
